FAERS Safety Report 13515315 (Version 2)
Quarter: 2017Q2

REPORT INFORMATION
  Report Type: Spontaneous
  Country: US (occurrence: US)
  Receive Date: 20170504
  Receipt Date: 20170612
  Transmission Date: 20170830
  Serious: Yes (Hospitalization)
  Sender: FDA-Public Use
  Company Number: US-CELGENEUS-USA-20170409035

PATIENT
  Sex: Female
  Weight: 45.4 kg

DRUGS (1)
  1. OTEZLA [Suspect]
     Active Substance: APREMILAST
     Indication: PSORIASIS
     Dosage: 5MG - 30MG
     Route: 048
     Dates: start: 20161206

REACTIONS (1)
  - Hepatic cancer [Unknown]
